FAERS Safety Report 9195016 (Version 1)
Quarter: 2013Q1

REPORT INFORMATION
  Report Type: Spontaneous
  Country: US (occurrence: US)
  Receive Date: 20130328
  Receipt Date: 20130328
  Transmission Date: 20140127
  Serious: No
  Sender: FDA-Public Use
  Company Number: US-ALLERGAN-1216075US

PATIENT
  Sex: Female

DRUGS (4)
  1. LATISSE 0.03% [Suspect]
     Indication: GROWTH OF EYELASHES
     Dosage: 2 UNK, QHS
     Route: 061
     Dates: start: 20121110, end: 20121111
  2. METFORMIN [Concomitant]
     Indication: DIABETES MELLITUS
     Dosage: 500 MG, UNK
  3. OTC IRON [Concomitant]
     Indication: ANAEMIA
  4. VISINE                             /00256502/ [Concomitant]
     Dosage: UNK UNK, PRN
     Route: 047

REACTIONS (2)
  - Eyelid oedema [Recovered/Resolved]
  - Eyelid oedema [Recovered/Resolved]
